FAERS Safety Report 4486125-3 (Version None)
Quarter: 2004Q4

REPORT INFORMATION
  Report Type: 
  Country: None (occurrence: None)
  Receive Date: 20041026
  Receipt Date: 20041014
  Transmission Date: 20050328
  Serious: Yes (Death)
  Sender: FDA-Public Use
  Company Number: BR-MERCK-0410BRA00353

PATIENT
  Age: 61 Year
  Sex: Female

DRUGS (2)
  1. VIOXX [Suspect]
     Indication: POST PROCEDURAL PAIN
     Route: 048
     Dates: start: 19990101, end: 20010101
  2. DICLOFENAC SODIUM [Concomitant]
     Indication: POST PROCEDURAL PAIN
     Route: 065

REACTIONS (2)
  - HAEMODIALYSIS [None]
  - RENAL FAILURE [None]
